FAERS Safety Report 23189917 (Version 1)
Quarter: 2023Q4

REPORT INFORMATION
  Report Type: Spontaneous
  Country: US (occurrence: US)
  Receive Date: 20231116
  Receipt Date: 20231116
  Transmission Date: 20240109
  Serious: No
  Sender: FDA-Public Use
  Company Number: US-CHIESI-2023CHF01566

PATIENT
  Sex: Female

DRUGS (3)
  1. TOBRAMYCIN [Suspect]
     Active Substance: TOBRAMYCIN
     Indication: Candida infection
     Dosage: 1 DOSAGE FORM, BID
     Route: 055
  2. TOBRAMYCIN [Suspect]
     Active Substance: TOBRAMYCIN
     Indication: Off label use
  3. OXYGEN [Concomitant]
     Active Substance: OXYGEN
     Indication: Product used for unknown indication
     Dosage: UNK

REACTIONS (4)
  - Dyspnoea [Unknown]
  - Wheezing [Unknown]
  - Drug ineffective for unapproved indication [Unknown]
  - Off label use [Recovered/Resolved]
